FAERS Safety Report 24303628 (Version 1)
Quarter: 2024Q3

REPORT INFORMATION
  Report Type: Spontaneous
  Country: JP (occurrence: JP)
  Receive Date: 20240910
  Receipt Date: 20240910
  Transmission Date: 20241016
  Serious: Yes (Hospitalization)
  Sender: PFIZER
  Company Number: JP-PFIZER INC-PV202400112472

PATIENT
  Age: 70 Year
  Sex: Male
  Weight: 56 kg

DRUGS (6)
  1. PAXLOVID [Suspect]
     Active Substance: NIRMATRELVIR\RITONAVIR
     Indication: COVID-19 treatment
     Dosage: [NIRMATRELVIR 300 MG]/[RITONAVIR 100 MG]; 2X/DAY
     Route: 048
     Dates: start: 20240822, end: 20240823
  2. ASPIRIN [Concomitant]
     Active Substance: ASPIRIN
     Indication: Prinzmetal angina
     Dosage: 1 DF, 1X/DAY AFTER BREAKFAST
  3. ESOMEPRAZOLE [Concomitant]
     Active Substance: ESOMEPRAZOLE
     Indication: Prinzmetal angina
     Dosage: 1 DF, 1X/DAY AFTER BREAKFAST
  4. NIFEDIPINE [Concomitant]
     Active Substance: NIFEDIPINE
     Indication: Prinzmetal angina
     Dosage: 1 DF, 1X/DAY AFTER BREAKFAST
  5. EZETIMIBE\ROSUVASTATIN [Concomitant]
     Active Substance: EZETIMIBE\ROSUVASTATIN
     Indication: Prinzmetal angina
     Dosage: 1 DF, 1X/DAY AFTER BREAKFAST
  6. ENTRESTO [Concomitant]
     Active Substance: SACUBITRIL\VALSARTAN
     Indication: Prinzmetal angina
     Dosage: 1 DF, 1X/DAY AFTER BREAKFAST

REACTIONS (3)
  - Blood pressure decreased [Recovered/Resolved]
  - Movement disorder [Unknown]
  - Off label use [Unknown]

NARRATIVE: CASE EVENT DATE: 20240822
